FAERS Safety Report 23030868 (Version 1)
Quarter: 2023Q4

REPORT INFORMATION
  Report Type: Report from Study
  Country: US (occurrence: US)
  Receive Date: 20231005
  Receipt Date: 20231005
  Transmission Date: 20240110
  Serious: Yes (Other)
  Sender: FDA-Public Use
  Company Number: US-ABBVIE-5433977

PATIENT
  Sex: Male

DRUGS (1)
  1. HUMIRA [Suspect]
     Active Substance: ADALIMUMAB
     Indication: Ankylosing spondylitis
     Dosage: TIME INTERVAL: AS NECESSARY: FORM STRENGTH: 40 MG, CF
     Route: 058

REACTIONS (1)
  - Brain neoplasm [Recovering/Resolving]

NARRATIVE: CASE EVENT DATE: 20210101
